FAERS Safety Report 19010779 (Version 1)
Quarter: 2021Q1

REPORT INFORMATION
  Report Type: Spontaneous
  Country: US (occurrence: US)
  Receive Date: 20210315
  Receipt Date: 20210315
  Transmission Date: 20210420
  Serious: No
  Sender: FDA-Public Use
  Company Number: None

PATIENT
  Sex: Female

DRUGS (3)
  1. PIQRAY [Suspect]
     Active Substance: ALPELISIB
  2. PIQRAY [Suspect]
     Active Substance: ALPELISIB
     Route: 048
     Dates: start: 202006, end: 202101
  3. PIQRAY [Suspect]
     Active Substance: ALPELISIB

REACTIONS (2)
  - Disease progression [None]
  - Therapy change [None]
